FAERS Safety Report 10864629 (Version 1)
Quarter: 2015Q1

REPORT INFORMATION
  Report Type: Report from Study
  Country: CZ (occurrence: CZ)
  Receive Date: 20150224
  Receipt Date: 20150224
  Transmission Date: 20150721
  Serious: Yes (Hospitalization)
  Sender: FDA-Public Use
  Company Number: CZ-GLAXOSMITHKLINE-CZ2015GSK023836

PATIENT
  Age: 36 Year
  Sex: Female

DRUGS (6)
  1. KAPECITABIN [Concomitant]
  2. TYKERB [Suspect]
     Active Substance: LAPATINIB DITOSYLATE
     Indication: PRODUCT USED FOR UNKNOWN INDICATION
     Dosage: 1000 MG, UNK
     Dates: start: 20140820
  3. VEROSPIRON [Concomitant]
     Active Substance: SPIRONOLACTONE
  4. HELICID [Concomitant]
  5. FORTECORTIN [Concomitant]
     Active Substance: DEXAMETHASONE
  6. DHC [Concomitant]
     Active Substance: DIHYDROCODEINE BITARTRATE

REACTIONS (2)
  - Vomiting [Recovered/Resolved]
  - Malaise [Recovered/Resolved]

NARRATIVE: CASE EVENT DATE: 20140828
